FAERS Safety Report 6987534-0 (Version None)
Quarter: 2010Q3

REPORT INFORMATION
  Report Type: 
  Country: None (occurrence: None)
  Receive Date: 20100916
  Receipt Date: 20100903
  Transmission Date: 20110219
  Serious: No
  Sender: FDA-Public Use
  Company Number: US-PFIZER INC-2010101898

PATIENT
  Sex: Female
  Weight: 94 kg

DRUGS (4)
  1. CELEBREX [Suspect]
     Indication: ARTHRITIS
     Dosage: 200 MG, DAILY
     Route: 048
     Dates: start: 20080101, end: 20080101
  2. CELEBREX [Suspect]
     Indication: BACK PAIN
  3. TOPROL-XL [Concomitant]
     Indication: HYPERTENSION
     Dosage: 100 MG, UNK
  4. COREG [Concomitant]
     Indication: HYPERTENSION
     Dosage: 12.5 MG, UNK

REACTIONS (1)
  - ABDOMINAL DISCOMFORT [None]
